FAERS Safety Report 24849150 (Version 2)
Quarter: 2025Q1

REPORT INFORMATION
  Report Type: Report from Study
  Country: IT (occurrence: IT)
  Receive Date: 20250116
  Receipt Date: 20250129
  Transmission Date: 20250408
  Serious: Yes (Other)
  Sender: TEVA
  Company Number: IT-TEVA-VS-3285426

PATIENT

DRUGS (1)
  1. DOXORUBICIN [Suspect]
     Active Substance: DOXORUBICIN
     Indication: Bile duct cancer
     Route: 013

REACTIONS (1)
  - Liver abscess [Unknown]
